FAERS Safety Report 21184915 (Version 1)
Quarter: 2022Q3

REPORT INFORMATION
  Report Type: Spontaneous
  Country: US (occurrence: None)
  Receive Date: 20220806
  Receipt Date: 20220806
  Transmission Date: 20221027
  Serious: Yes (Disabling)
  Sender: FDA-Public Use
  Company Number: None

PATIENT
  Age: 28 Year
  Sex: Male
  Weight: 71.1 kg

DRUGS (1)
  1. VIIBRYD [Suspect]
     Active Substance: VILAZODONE HYDROCHLORIDE
     Indication: Depression
     Dosage: OTHER QUANTITY : 1 TABLET(S);?FREQUENCY : AT BEDTIME;?
     Route: 048
     Dates: start: 20220801, end: 20220806

REACTIONS (7)
  - Product substitution issue [None]
  - Dizziness [None]
  - Disorientation [None]
  - Insomnia [None]
  - Electric shock sensation [None]
  - Confusional state [None]
  - Impaired driving ability [None]

NARRATIVE: CASE EVENT DATE: 20220806
